FAERS Safety Report 5480516-X (Version None)
Quarter: 2007Q4

REPORT INFORMATION
  Report Type: 
  Country: None (occurrence: None)
  Receive Date: 20071009
  Receipt Date: 20071005
  Transmission Date: 20080405
  Serious: Yes (Hospitalization)
  Sender: FDA-Public Use
  Company Number: CH-ASTRAZENECA-2007PK02039

PATIENT
  Age: 77 Year
  Sex: Female

DRUGS (10)
  1. SEROQUEL [Suspect]
     Route: 048
     Dates: start: 20070411, end: 20070423
  2. SEROQUEL [Suspect]
     Route: 048
     Dates: start: 20070424, end: 20070424
  3. SEROQUEL [Suspect]
     Route: 048
     Dates: start: 20070425, end: 20070520
  4. SEROQUEL [Suspect]
     Route: 048
     Dates: start: 20070521, end: 20070521
  5. SEROQUEL [Suspect]
     Route: 048
     Dates: start: 20070522, end: 20070522
  6. SEROQUEL [Suspect]
     Route: 048
     Dates: start: 20070523, end: 20070531
  7. SINQUAN [Suspect]
     Route: 048
     Dates: start: 20070426, end: 20070430
  8. SINQUAN [Suspect]
     Route: 048
     Dates: start: 20070430
  9. REMERON [Concomitant]
     Route: 048
     Dates: start: 20070411, end: 20070502
  10. REMERON [Concomitant]
     Route: 048
     Dates: start: 20070502

REACTIONS (2)
  - BLOOD PROLACTIN INCREASED [None]
  - BREAST DISCOMFORT [None]
